FAERS Safety Report 7557843-5 (Version None)
Quarter: 2011Q2

REPORT INFORMATION
  Report Type: 
  Country: None (occurrence: None)
  Receive Date: 20110613
  Receipt Date: 20110608
  Transmission Date: 20111010
  Serious: Yes (Hospitalization)
  Sender: FDA-Public Use
  Company Number: 2011SP024409

PATIENT
  Age: 41 Year
  Sex: Male

DRUGS (2)
  1. VINCRISTINE SULFATE [Suspect]
     Indication: ACUTE LYMPHOCYTIC LEUKAEMIA RECURRENT
     Dosage: 2 MG;QD;IV
     Route: 042
     Dates: start: 20110329, end: 20110329
  2. NOXAFIL [Suspect]
     Indication: BRONCHOPULMONARY ASPERGILLOSIS
     Dosage: 800 MG;QD;PO
     Route: 048
     Dates: start: 20110301, end: 20110409

REACTIONS (2)
  - LARGE INTESTINAL OBSTRUCTION [None]
  - ACUTE LYMPHOCYTIC LEUKAEMIA RECURRENT [None]
